FAERS Safety Report 6672659-X (Version None)
Quarter: 2010Q2

REPORT INFORMATION
  Report Type: 
  Country: None (occurrence: None)
  Receive Date: 20100408
  Receipt Date: 20100330
  Transmission Date: 20101027
  Serious: Yes (Other)
  Sender: FDA-Public Use
  Company Number: DE-ROCHE-687269

PATIENT
  Sex: Female
  Weight: 69 kg

DRUGS (6)
  1. AVASTIN [Suspect]
     Dosage: 15 MG/KG
     Route: 042
     Dates: start: 20091126, end: 20100129
  2. AVASTIN [Suspect]
     Dosage: REINTRODUCED AFTER EVENT
     Route: 042
  3. TAXANE NOS [Suspect]
     Dosage: TWO CYCLES ADMINISTERED.
     Route: 065
  4. COAPROVEL [Concomitant]
     Indication: HYPERTENSION
     Dosage: ONE DOSE FORM IN THE MORNING 150 MG/12.5 MG
     Route: 048
     Dates: start: 20090526
  5. BISOPROLOL [Concomitant]
     Indication: HYPERTENSION
     Dosage: 0.5 DOSE FORM IN THE MORNING
     Route: 048
     Dates: start: 20090526
  6. PANTOPRAZOLE SODIUM [Concomitant]
     Dosage: ONE DOSE FORM IN THE MORNING
     Route: 048
     Dates: start: 20091202

REACTIONS (2)
  - RETINAL HAEMORRHAGE [None]
  - VISUAL FIELD DEFECT [None]
